FAERS Safety Report 5369052-9 (Version None)
Quarter: 2007Q2

REPORT INFORMATION
  Report Type: 
  Country: None (occurrence: None)
  Receive Date: 20070625
  Receipt Date: 20070111
  Transmission Date: 20071010
  Serious: No
  Sender: FDA-Public Use
  Company Number: US-ASTRAZENECA-2007UW00618

PATIENT
  Age: 76 Year
  Sex: Female
  Weight: 83.9 kg

DRUGS (3)
  1. CRESTOR [Suspect]
     Indication: BLOOD CHOLESTEROL INCREASED
     Route: 048
  2. NEXIUM HCI [Concomitant]
     Route: 048
  3. VITAMIN TAB [Concomitant]

REACTIONS (1)
  - EPISTAXIS [None]
